FAERS Safety Report 11162302 (Version 1)
Quarter: 2015Q2

REPORT INFORMATION
  Report Type: Spontaneous
  Country: US (occurrence: US)
  Receive Date: 20150604
  Receipt Date: 20150604
  Transmission Date: 20150821
  Serious: No
  Sender: FDA-Public Use
  Company Number: US-SA-2014SA147382

PATIENT
  Sex: Male

DRUGS (2)
  1. LANTUS [Suspect]
     Active Substance: INSULIN GLARGINE
     Dosage: DOSE:50 UNIT(S)
     Route: 065
  2. NOVOLOG [Suspect]
     Active Substance: INSULIN ASPART
     Dosage: DOSE:50 UNIT(S)
     Route: 065

REACTIONS (4)
  - Dysgeusia [Unknown]
  - Feeling abnormal [Unknown]
  - Blood glucose decreased [Recovered/Resolved]
  - Wrong drug administered [Unknown]
